FAERS Safety Report 15707158 (Version 4)
Quarter: 2018Q4

REPORT INFORMATION
  Report Type: Spontaneous
  Country: IT (occurrence: IT)
  Receive Date: 20181210
  Receipt Date: 20181221
  Transmission Date: 20190205
  Serious: Yes (Congenital Anomaly, Other)
  Sender: FDA-Public Use
  Company Number: PHHY2018IT179971

PATIENT
  Sex: Female

DRUGS (3)
  1. INTERFERON BETA-1B [Suspect]
     Active Substance: INTERFERON BETA-1B
     Indication: FOETAL EXPOSURE DURING PREGNANCY
     Dosage: UNK
     Route: 064
  2. INTERFERON BETA-1A [Suspect]
     Active Substance: INTERFERON BETA-1A
     Indication: FOETAL EXPOSURE DURING PREGNANCY
     Route: 064
  3. GLATIRAMER ACETATE. [Suspect]
     Active Substance: GLATIRAMER ACETATE
     Indication: FOETAL EXPOSURE DURING PREGNANCY
     Dosage: THE SUSPECT MEDICATION WAS TAKEN BY THE FATHER
     Route: 064

REACTIONS (5)
  - Jaundice [Unknown]
  - Paternal exposure before pregnancy [Unknown]
  - Haemangioma [Unknown]
  - Oesophageal atresia [Unknown]
  - Developmental hip dysplasia [Unknown]
